FAERS Safety Report 21259950 (Version 1)
Quarter: 2022Q3

REPORT INFORMATION
  Report Type: Report from Study
  Country: US (occurrence: US)
  Receive Date: 20220826
  Receipt Date: 20220826
  Transmission Date: 20221027
  Serious: Yes (Hospitalization)
  Sender: FDA-Public Use
  Company Number: US-GLAXOSMITHKLINE-US2022GSK114143

PATIENT

DRUGS (13)
  1. DOSTARLIMAB [Suspect]
     Active Substance: DOSTARLIMAB
     Indication: Breast cancer
     Dosage: 500 MG, (EVERY 3 WEEKS) WE
     Route: 042
     Dates: start: 20220511, end: 20220511
  2. DOSTARLIMAB [Suspect]
     Active Substance: DOSTARLIMAB
     Dosage: 500 MG, WE ((EVERY 3 WEEKS)
     Route: 042
     Dates: start: 20220511, end: 20220720
  3. CARBOPLATIN [Suspect]
     Active Substance: CARBOPLATIN
     Indication: Breast cancer
     Dosage: 200 MG
     Route: 042
     Dates: start: 20220511, end: 20220511
  4. CARBOPLATIN [Suspect]
     Active Substance: CARBOPLATIN
     Dosage: 116 MG, WE
     Route: 042
     Dates: start: 20220511, end: 20220810
  5. PACLITAXEL [Suspect]
     Active Substance: PACLITAXEL
     Indication: Breast cancer
     Dosage: 270 MG, TAKE FOR 3 CONSECUTIVE DAYS OF 7 WEEKS CYCLE.
     Route: 048
     Dates: start: 20220511, end: 20220810
  6. ENCEQUIDAR MESYLATE MONOHYDRATE [Suspect]
     Active Substance: ENCEQUIDAR MESYLATE MONOHYDRATE
     Dosage: 15 MG (ADMINISTER FIRST ON DAYS 1, 2, AND 3 EVERY 7 DAYS FOR 12 WEEKS)
     Route: 048
     Dates: start: 20220511, end: 20220810
  7. ONDANSETRON [Concomitant]
     Active Substance: ONDANSETRON
     Indication: Nausea
     Dosage: 8 MG,Q 12HR PRN
     Route: 048
     Dates: start: 20220511
  8. ONDANSETRON [Concomitant]
     Active Substance: ONDANSETRON
     Indication: Vomiting
  9. COMPAZINE [Concomitant]
     Active Substance: PROCHLORPERAZINE MALEATE
     Indication: Nausea
     Dosage: 10 MG,PRN EVERY 6HRS
     Route: 048
     Dates: start: 20220715
  10. COMPAZINE [Concomitant]
     Active Substance: PROCHLORPERAZINE MALEATE
     Indication: Vomiting
  11. BACTRIM DS [Concomitant]
     Active Substance: SULFAMETHOXAZOLE\TRIMETHOPRIM
     Indication: Product used for unknown indication
     Dosage: 800-160 MG
     Route: 048
     Dates: start: 20220622
  12. GRANIX [Concomitant]
     Active Substance: TBO-FILGRASTIM
     Indication: White blood cell count decreased
     Dosage: 300 MCG/ML
     Route: 042
  13. EMLA [Concomitant]
     Active Substance: LIDOCAINE\PRILOCAINE
     Indication: Product used for unknown indication
     Dosage: APPLY 40 MINS PRIOR TO

REACTIONS (2)
  - Pyrexia [Recovered/Resolved]
  - Shock [Recovered/Resolved]

NARRATIVE: CASE EVENT DATE: 20220721
